FAERS Safety Report 8856471 (Version 1)
Quarter: 2012Q4

REPORT INFORMATION
  Report Type: 
  Country: US (occurrence: US)
  Receive Date: 20121023
  Receipt Date: 20121023
  Transmission Date: 20130627
  Serious: No
  Sender: FDA-Public Use
  Company Number: US-AMGEN-USASP2012057177

PATIENT
  Age: 50 Year
  Sex: Female
  Weight: 79.82 kg

DRUGS (12)
  1. ENBREL [Suspect]
     Indication: PRODUCT USED FOR UNKNOWN INDICATION
     Dosage: 50 mg, qwk
     Route: 058
  2. HYDROCHLOROTH [Concomitant]
     Dosage: 12.5 mg, UNK
  3. MAXALT                             /01406501/ [Concomitant]
     Dosage: 5 mg, UNK
  4. OMEPRAZOL                          /00661201/ [Concomitant]
     Dosage: 10 mg, UNK
  5. VITAMIN D /00107901/ [Concomitant]
     Dosage: 400 UNK, UNK
  6. CALCIUM [Concomitant]
     Dosage: 500 mg, UNK
  7. NASONEX [Concomitant]
     Dosage: 50MCG/AC
  8. LEFLUNOMID [Concomitant]
     Dosage: 10 mg, UNK
  9. SULFASALAZIN [Concomitant]
     Dosage: 500 mg, UNK
  10. ETODOLAC [Concomitant]
     Dosage: 200 mg, UNK
  11. VALTREX [Concomitant]
     Dosage: 500 mg, UNK
  12. HYDROXYCHLOROQUINE [Concomitant]
     Dosage: 200 mg, UNK

REACTIONS (3)
  - Rash macular [Unknown]
  - Dry skin [Unknown]
  - Pruritus [Unknown]
